FAERS Safety Report 17161433 (Version 2)
Quarter: 2020Q2

REPORT INFORMATION
  Report Type: Spontaneous
  Country: US (occurrence: US)
  Receive Date: 20191216
  Receipt Date: 20200605
  Transmission Date: 20200713
  Serious: Yes (Death)
  Sender: FDA-Public Use
  Company Number: US-TAKEDA-2019TUS070224

PATIENT
  Age: 80 Year
  Sex: Female
  Weight: 86.17 kg

DRUGS (3)
  1. NINLARO [Suspect]
     Active Substance: IXAZOMIB CITRATE
     Dosage: 3 MILLIGRAM, QD
     Route: 048
  2. REVLIMID [Suspect]
     Active Substance: LENALIDOMIDE
     Indication: PRODUCT USED FOR UNKNOWN INDICATION
     Dosage: 2.5 MILLIGRAM
     Route: 065
  3. NINLARO [Suspect]
     Active Substance: IXAZOMIB CITRATE
     Indication: PLASMA CELL MYELOMA
     Dosage: 4 MILLIGRAM
     Route: 048

REACTIONS (2)
  - Thrombocytopenia [Unknown]
  - Death [Fatal]

NARRATIVE: CASE EVENT DATE: 20200602
